FAERS Safety Report 8611275 (Version 3)
Quarter: 2013Q4

REPORT INFORMATION
  Report Type: Spontaneous
  Country: JP (occurrence: JP)
  Receive Date: 20120612
  Receipt Date: 20131101
  Transmission Date: 20140711
  Serious: No
  Sender: FDA-Public Use
  Company Number: JP-MSD-1206USA01492

PATIENT
  Age: 52 Year
  Sex: Male

DRUGS (2)
  1. GLACTIV [Suspect]
     Indication: TYPE 2 DIABETES MELLITUS
     Dosage: 50 MG, UNK
     Route: 048
     Dates: start: 20120401, end: 20120507
  2. INSULIN [Concomitant]
     Dosage: UNK UNK, QD

REACTIONS (1)
  - Drug eruption [Recovered/Resolved]
